FAERS Safety Report 24039667 (Version 2)
Quarter: 2024Q4

REPORT INFORMATION
  Report Type: Spontaneous
  Country: JP (occurrence: JP)
  Receive Date: 20240702
  Receipt Date: 20241204
  Transmission Date: 20250115
  Serious: Yes (Hospitalization, Other)
  Sender: AMGEN
  Company Number: JP-AMGEN-JPNSP2024128627

PATIENT
  Age: 14 Year
  Sex: Female
  Weight: 46.9 kg

DRUGS (15)
  1. BLINCYTO [Suspect]
     Active Substance: BLINATUMOMAB
     Indication: B-cell type acute leukaemia
     Dosage: 28 MICROGRAM, QD (24 HOURS X 28 DAYS) (TWO CYCLES)
     Route: 040
     Dates: start: 201902, end: 201907
  2. BLINCYTO [Suspect]
     Active Substance: BLINATUMOMAB
     Dosage: 9 MICROGRAM, QD (ON DAYS 1-7)
     Route: 042
     Dates: start: 201911
  3. BLINCYTO [Suspect]
     Active Substance: BLINATUMOMAB
     Dosage: 28 MICROGRAM, QD (ON DAYS 8-28)
     Route: 042
  4. BLINCYTO [Suspect]
     Active Substance: BLINATUMOMAB
     Dosage: 28 MICROGRAM, QD (FOR ALL 28 DAYS) (24 HOURS X 28 DAYS)
     Route: 042
     Dates: start: 202001, end: 202002
  5. DASATINIB [Concomitant]
     Active Substance: DASATINIB
     Indication: B-cell type acute leukaemia
     Dosage: UNK
     Route: 065
     Dates: start: 201902
  6. CYCLOPHOSPHAMIDE\DEXAMETHASONE\DOXORUBICIN\VINCRISTINE [Concomitant]
     Active Substance: CYCLOPHOSPHAMIDE\DEXAMETHASONE\DOXORUBICIN\VINCRISTINE
     Indication: B-cell type acute leukaemia
     Dosage: UNK
     Route: 065
     Dates: start: 201902
  7. METHOTREXATE [Concomitant]
     Active Substance: METHOTREXATE
     Indication: B-cell type acute leukaemia
     Dosage: UNK (ON DAYS 7, 14, 21, AND 30)
     Route: 029
     Dates: start: 201911
  8. METHOTREXATE [Concomitant]
     Active Substance: METHOTREXATE
     Dosage: UNK (ON DAYS 1, 15, AND 30)
     Route: 029
     Dates: start: 202001
  9. CYTARABINE [Concomitant]
     Active Substance: CYTARABINE
     Indication: B-cell type acute leukaemia
     Dosage: UNK (ON DAYS 7, 14, 21, AND 30)
     Route: 029
     Dates: start: 201911
  10. CYTARABINE [Concomitant]
     Active Substance: CYTARABINE
     Dosage: UNK (ON DAYS 1, 15, AND 30)
     Route: 029
     Dates: start: 202001
  11. PREDNISOLONE [Concomitant]
     Active Substance: PREDNISOLONE
     Indication: B-cell type acute leukaemia
     Dosage: UNK (ON DAYS 7, 14, 21, AND 30)
     Route: 029
     Dates: start: 201911
  12. PREDNISOLONE [Concomitant]
     Active Substance: PREDNISOLONE
     Dosage: UNK (ON DAYS 1, 15, AND 30)
     Route: 029
     Dates: start: 202001
  13. MORPHINE [Concomitant]
     Active Substance: MORPHINE
  14. DEXAMETHASONE [Concomitant]
     Active Substance: DEXAMETHASONE
  15. LEVETIRACETAM [Concomitant]
     Active Substance: LEVETIRACETAM

REACTIONS (2)
  - Central nervous system leukaemia [Recovered/Resolved]
  - Acute lymphocytic leukaemia recurrent [Recovered/Resolved]

NARRATIVE: CASE EVENT DATE: 20191101
